FAERS Safety Report 22119018 (Version 1)
Quarter: 2023Q1

REPORT INFORMATION
  Report Type: Spontaneous
  Country: US (occurrence: US)
  Receive Date: 20230321
  Receipt Date: 20230321
  Transmission Date: 20230418
  Serious: No
  Sender: FDA-Public Use
  Company Number: US-AMGEN-USASP2023046380

PATIENT
  Age: 72 Year
  Sex: Male

DRUGS (2)
  1. REPATHA [Suspect]
     Active Substance: EVOLOCUMAB
     Indication: Hyperlipidaemia
     Dosage: 140 MILLIGRAM, Q2WK
     Route: 065
     Dates: start: 20220815
  2. REPATHA [Suspect]
     Active Substance: EVOLOCUMAB
     Indication: Low density lipoprotein increased

REACTIONS (4)
  - Incorrect disposal of product [Unknown]
  - Device difficult to use [Unknown]
  - Accidental exposure to product [Unknown]
  - Wrong technique in product usage process [Unknown]

NARRATIVE: CASE EVENT DATE: 20230305
